FAERS Safety Report 4820549-7 (Version None)
Quarter: 2005Q4

REPORT INFORMATION
  Report Type: 
  Country: None (occurrence: None)
  Receive Date: 20051014
  Receipt Date: 20050629
  Transmission Date: 20060501
  Serious: No
  Sender: FDA-Public Use
  Company Number: 2005SP001672

PATIENT
  Age: 74 Year
  Sex: Female
  Weight: 90.7194 kg

DRUGS (8)
  1. LUNESTA [Suspect]
     Indication: INSOMNIA
     Dosage: 2 MG;HS;ORAL, 1 MG;HS;ORAL, 2 MG;HS;ORAL
     Route: 048
     Dates: start: 20050601, end: 20050601
  2. LUNESTA [Suspect]
     Indication: INSOMNIA
     Dosage: 2 MG;HS;ORAL, 1 MG;HS;ORAL, 2 MG;HS;ORAL
     Route: 048
     Dates: start: 20050601, end: 20050601
  3. LUNESTA [Suspect]
     Indication: INSOMNIA
     Dosage: 2 MG;HS;ORAL, 1 MG;HS;ORAL, 2 MG;HS;ORAL
     Route: 048
     Dates: start: 20050601, end: 20050629
  4. CODEINE [Concomitant]
  5. NEXIUM [Concomitant]
  6. UNSPECIFIED PAIN MEDICATION [Concomitant]
  7. AMBIEN [Concomitant]
  8. . [Concomitant]

REACTIONS (2)
  - DRUG INEFFECTIVE [None]
  - INSOMNIA [None]
